FAERS Safety Report 8058585-2 (Version None)
Quarter: 2012Q1

REPORT INFORMATION
  Report Type: 
  Country: None (occurrence: None)
  Receive Date: 20120119
  Receipt Date: 20120119
  Transmission Date: 20120608
  Serious: Yes (Hospitalization)
  Sender: FDA-Public Use
  Company Number: None

PATIENT
  Age: 84 Year
  Sex: Male
  Weight: 95.8 kg

DRUGS (15)
  1. PROPRANOLOL [Concomitant]
  2. FINASTERIDE [Concomitant]
  3. LEVOFLOXACIN [Concomitant]
  4. AMLODIPINE [Concomitant]
  5. M.V.I. [Concomitant]
  6. LASIX [Concomitant]
  7. ASPIRIN [Concomitant]
  8. LISINOPRIL [Suspect]
     Indication: HYPERTENSION
     Dosage: 40MG BID PO CHRONIC
     Route: 048
  9. METFORMIN [Concomitant]
  10. PERCOCET [Concomitant]
  11. CALCIUM CITRATE [Concomitant]
  12. B+O SUPPL [Concomitant]
  13. LOVASTATIN [Concomitant]
  14. COLCHICINE [Concomitant]
  15. ASCORBIC ACID [Concomitant]

REACTIONS (1)
  - ANGIOEDEMA [None]
